FAERS Safety Report 6002818-0 (Version None)
Quarter: 2008Q4

REPORT INFORMATION
  Report Type: 
  Country: None (occurrence: None)
  Receive Date: 20081215
  Receipt Date: 20071121
  Transmission Date: 20090506
  Serious: No
  Sender: FDA-Public Use
  Company Number: US-AMGEN-KDL251605

PATIENT
  Sex: Female
  Weight: 59 kg

DRUGS (3)
  1. ENBREL [Suspect]
     Indication: PSORIASIS
     Route: 058
     Dates: start: 20061215
  2. DETROL [Concomitant]
     Dates: start: 20070405
  3. ORTHO TRI-CYCLEN (ORTHO-MCNEIL) [Concomitant]
     Dates: start: 20050310

REACTIONS (4)
  - INJECTION SITE ERYTHEMA [None]
  - INJECTION SITE INDURATION [None]
  - INJECTION SITE PAIN [None]
  - INJECTION SITE REACTION [None]
